FAERS Safety Report 15819988 (Version 2)
Quarter: 2019Q1

REPORT INFORMATION
  Report Type: Report from Study
  Country: US (occurrence: US)
  Receive Date: 20190114
  Receipt Date: 20190306
  Transmission Date: 20190417
  Serious: Yes (Other)
  Sender: FDA-Public Use
  Company Number: US-BAUSCH-BL-2019-001105

PATIENT
  Sex: Male
  Weight: 80.81 kg

DRUGS (2)
  1. CUPRIMINE [Suspect]
     Active Substance: PENICILLAMINE
     Dosage: 3 PILLS A DAY
     Route: 048
     Dates: start: 2018
  2. CUPRIMINE [Suspect]
     Active Substance: PENICILLAMINE
     Indication: HEPATO-LENTICULAR DEGENERATION
     Dosage: 2 PILLS A DAY
     Route: 048
     Dates: end: 2018

REACTIONS (2)
  - Jaundice [Unknown]
  - Product lot number issue [Unknown]

NARRATIVE: CASE EVENT DATE: 2018
